FAERS Safety Report 7897913-5 (Version None)
Quarter: 2011Q4

REPORT INFORMATION
  Report Type: 
  Country: None (occurrence: None)
  Receive Date: 20111107
  Receipt Date: 20110113
  Transmission Date: 20120403
  Serious: No
  Sender: FDA-Public Use
  Company Number: US-BAYER-2011-005299

PATIENT
  Age: 49 Year
  Sex: Female

DRUGS (1)
  1. CLIMARA [Suspect]
     Indication: HOT FLUSH
     Dosage: UNK
     Route: 062
     Dates: start: 20110113

REACTIONS (2)
  - HEADACHE [None]
  - NAUSEA [None]
